FAERS Safety Report 7423704-5 (Version None)
Quarter: 2011Q2

REPORT INFORMATION
  Report Type: 
  Country: None (occurrence: None)
  Receive Date: 20110411
  Receipt Date: 20110328
  Transmission Date: 20111010
  Serious: Yes (Hospitalization)
  Sender: FDA-Public Use
  Company Number: DAV-AE-MTX-11-023

PATIENT
  Age: 45 Year
  Sex: Female

DRUGS (3)
  1. PREDNISOLONE [Concomitant]
  2. IV INFLIXIMAB [Concomitant]
  3. METHOTREXATE [Suspect]
     Indication: COLITIS ULCERATIVE

REACTIONS (2)
  - INFLUENZA [None]
  - VIRAL INFECTION [None]
